FAERS Safety Report 13551782 (Version 1)
Quarter: 2017Q2

REPORT INFORMATION
  Report Type: Report from Study
  Country: US (occurrence: US)
  Receive Date: 20170516
  Receipt Date: 20170516
  Transmission Date: 20170830
  Serious: Yes (Hospitalization)
  Sender: FDA-Public Use
  Company Number: US-TEVA-728364USA

PATIENT
  Age: 62 Year
  Sex: Female

DRUGS (1)
  1. CLOZAPINE. [Suspect]
     Active Substance: CLOZAPINE
     Route: 048
     Dates: end: 20170227

REACTIONS (3)
  - Pancytopenia [Recovered/Resolved]
  - Fall [Unknown]
  - Adverse event [Unknown]

NARRATIVE: CASE EVENT DATE: 20170227
